FAERS Safety Report 17933987 (Version 1)
Quarter: 2020Q2

REPORT INFORMATION
  Report Type: Spontaneous
  Country: DE (occurrence: DE)
  Receive Date: 20200624
  Receipt Date: 20200624
  Transmission Date: 20200714
  Serious: No
  Sender: FDA-Public Use
  Company Number: DE-LUPIN PHARMACEUTICALS INC.-2020-02503

PATIENT
  Age: 65 Year
  Sex: Female

DRUGS (2)
  1. EZETIMIBE. [Suspect]
     Active Substance: EZETIMIBE
     Indication: LOW DENSITY LIPOPROTEIN INCREASED
     Dosage: UNK
     Route: 065
  2. ATORVASTATIN [Suspect]
     Active Substance: ATORVASTATIN
     Indication: LOW DENSITY LIPOPROTEIN INCREASED
     Dosage: 60 MILLIGRAM, UNK
     Route: 065

REACTIONS (1)
  - Drug intolerance [Unknown]
